FAERS Safety Report 25440307 (Version 1)
Quarter: 2025Q2

REPORT INFORMATION
  Report Type: Spontaneous
  Country: US (occurrence: None)
  Receive Date: 20250615
  Receipt Date: 20250615
  Transmission Date: 20250716
  Serious: Yes (Disabling)
  Sender: FDA-CTU
  Company Number: None

PATIENT
  Age: 37 Year
  Sex: Female
  Weight: 49.5 kg

DRUGS (2)
  1. DOXYCYCLINE [Suspect]
     Active Substance: DOXYCYCLINE
     Indication: Rash
     Dosage: FREQUENCY : TWICE A DAY;?
     Route: 048
     Dates: start: 20250401, end: 20250614
  2. VITAMINS [Concomitant]
     Active Substance: VITAMINS

REACTIONS (1)
  - Peripheral sensory neuropathy [None]

NARRATIVE: CASE EVENT DATE: 20250608
